FAERS Safety Report 5289016-3 (Version None)
Quarter: 2007Q1

REPORT INFORMATION
  Report Type: 
  Country: None (occurrence: None)
  Receive Date: 20070118
  Receipt Date: 20061003
  Transmission Date: 20070707
  Serious: Yes (Other)
  Sender: FDA-Public Use
  Company Number: HQWYE667105OCT06

PATIENT
  Age: 56 Year
  Sex: Female
  Weight: 47.67 kg

DRUGS (4)
  1. ADVIL PM [Suspect]
     Indication: BACK PAIN
     Dosage: SEE IMAGE
     Route: 048
     Dates: start: 20060801, end: 20060801
  2. ADVIL PM [Suspect]
     Indication: INSOMNIA
     Dosage: SEE IMAGE
     Route: 048
     Dates: start: 20060801, end: 20060801
  3. ADVIL PM [Suspect]
     Indication: BACK PAIN
     Dosage: SEE IMAGE
     Route: 048
     Dates: start: 20060818, end: 20060818
  4. ADVIL PM [Suspect]
     Indication: INSOMNIA
     Dosage: SEE IMAGE
     Route: 048
     Dates: start: 20060818, end: 20060818

REACTIONS (3)
  - AGITATION [None]
  - FORMICATION [None]
  - IRRITABILITY [None]
